FAERS Safety Report 4339275-6 (Version None)
Quarter: 2004Q2

REPORT INFORMATION
  Report Type: 
  Country: None (occurrence: None)
  Receive Date: 20040412
  Receipt Date: 20040329
  Transmission Date: 20050107
  Serious: Yes (Hospitalization, Other)
  Sender: FDA-Public Use
  Company Number: 2003-11-0533

PATIENT
  Age: 28 Year
  Sex: Female
  Weight: 83.0083 kg

DRUGS (4)
  1. CLARITIN-D [Suspect]
     Indication: SEASONAL ALLERGY
     Dosage: 1 TAB QD ORAL
     Route: 048
     Dates: start: 20030926, end: 20030927
  2. BORIC ACID [Concomitant]
  3. DETROL [Concomitant]
  4. MOMETASONE [Concomitant]

REACTIONS (4)
  - CHEST DISCOMFORT [None]
  - HEART RATE INCREASED [None]
  - PALPITATIONS [None]
  - PLEURITIC PAIN [None]
